FAERS Safety Report 9374627 (Version 1)
Quarter: 2013Q2

REPORT INFORMATION
  Report Type: Spontaneous
  Country: CH (occurrence: None)
  Receive Date: 20130624
  Receipt Date: 20130624
  Transmission Date: 20140414
  Serious: Yes (Hospitalization)
  Sender: FDA-Public Use
  Company Number: 20130308

PATIENT
  Age: 87 Year
  Sex: Female

DRUGS (6)
  1. VENOFER (IRON SUCROSE INJECTION-VIFOR) (IRON SUCROSE INJECTION) 20 MG/ML [Suspect]
     Indication: IRON DEFICIENCY ANAEMIA
     Dosage: 4 IN TOTAL
     Dates: start: 20130318, end: 20130411
  2. BROMAZEPAM [Concomitant]
  3. ESCITALOPRAM [Concomitant]
  4. DIFFU K [Concomitant]
  5. TRANSIPEG [Concomitant]
  6. SOTALOL, 0.5 DF [Concomitant]

REACTIONS (1)
  - Vessel puncture site thrombosis [None]
